FAERS Safety Report 8595092-2 (Version None)
Quarter: 2012Q3

REPORT INFORMATION
  Report Type: 
  Country: None (occurrence: None)
  Receive Date: 20120815
  Receipt Date: 20120809
  Transmission Date: 20120928
  Serious: Yes (Death, Life-Threatening, Hospitalization, Other)
  Sender: FDA-Public Use
  Company Number: US-CELGENEUS-163-21880-12070846

PATIENT
  Sex: Male
  Weight: 103.1 kg

DRUGS (23)
  1. CHOLECALCIFEROL [Concomitant]
     Route: 065
  2. METOPROLOL TARTRATE [Concomitant]
     Indication: ATRIAL FIBRILLATION
     Dosage: 75 MILLIGRAM
     Route: 065
  3. SUCRALFATE [Concomitant]
     Route: 065
  4. LEVALBUTEROL HCL [Concomitant]
     Route: 065
  5. DEXTROSE 5% [Concomitant]
     Dosage: 42 MILLILITER
     Route: 065
  6. PANTOPRAZOLE [Concomitant]
     Indication: PROPHYLAXIS
     Route: 065
  7. MORPHINE [Concomitant]
     Indication: PAIN
     Dosage: 1 MILLIGRAM
     Route: 065
  8. FLUCONAZOLE [Concomitant]
     Route: 065
  9. MEPRON [Concomitant]
     Route: 065
  10. METFORMIN HYDROCHLORIDE [Concomitant]
     Indication: ATRIAL FIBRILLATION
     Route: 065
  11. ASPIRIN [Concomitant]
     Dosage: 81 MILLIGRAM
     Route: 065
  12. METOPROLOL TARTRATE [Concomitant]
     Dosage: 20 MILLIGRAM
     Route: 041
  13. OMEPRAZOLE [Concomitant]
     Route: 065
  14. ROSUVASTATIN [Concomitant]
     Route: 065
  15. REVLIMID [Suspect]
     Indication: MULTIPLE MYELOMA
     Dosage: 10 MILLIGRAM
     Route: 048
     Dates: start: 20120424, end: 20120602
  16. CLINDAMYCIN [Concomitant]
     Route: 065
  17. LYRICA [Concomitant]
     Route: 065
  18. VALACYCLOVIR HYDROCHLORIDE [Concomitant]
     Route: 065
  19. DEXAMETHASONE [Suspect]
     Indication: MULTIPLE MYELOMA
     Dosage: 40 MILLIGRAM
     Route: 048
     Dates: start: 20120424, end: 20120602
  20. XYLOXYLIN [Concomitant]
     Route: 065
  21. LACTULOSE [Concomitant]
     Indication: CONSTIPATION
     Dosage: 60 MILLILITER
     Route: 048
  22. TRAMADOL HCL [Concomitant]
     Route: 065
  23. INSULIN [Concomitant]
     Dosage: SLIDING SCALE
     Route: 065

REACTIONS (13)
  - HALLUCINATION [None]
  - MULTIPLE MYELOMA [None]
  - HEPATIC ENCEPHALOPATHY [None]
  - METABOLIC ACIDOSIS [None]
  - BLOOD CALCIUM INCREASED [None]
  - HYPOTENSION [None]
  - THROMBOCYTOPENIA [None]
  - EPISTAXIS [None]
  - AMMONIA INCREASED [None]
  - DEPRESSED LEVEL OF CONSCIOUSNESS [None]
  - RESPIRATORY FAILURE [None]
  - RENAL FAILURE ACUTE [None]
  - MENTAL STATUS CHANGES [None]
